FAERS Safety Report 20165765 (Version 1)
Quarter: 2021Q4

REPORT INFORMATION
  Report Type: Spontaneous
  Country: US (occurrence: US)
  Receive Date: 20211209
  Receipt Date: 20211209
  Transmission Date: 20220303
  Serious: Yes (Hospitalization, Other)
  Sender: FDA-Public Use
  Company Number: US-drreddys-SPO/USA/21/0144533

PATIENT
  Age: 79 Year
  Sex: Male

DRUGS (2)
  1. ALLOPURINOL [Suspect]
     Active Substance: ALLOPURINOL
     Indication: Tumour lysis syndrome
  2. IBRUTINIB [Concomitant]
     Active Substance: IBRUTINIB
     Indication: Mantle cell lymphoma refractory

REACTIONS (1)
  - Drug-induced liver injury [Recovering/Resolving]
